FAERS Safety Report 20189891 (Version 2)
Quarter: 2022Q1

REPORT INFORMATION
  Report Type: Report from Study
  Country: AU (occurrence: AU)
  Receive Date: 20211215
  Receipt Date: 20220107
  Transmission Date: 20220424
  Serious: Yes (Other)
  Sender: FDA-Public Use
  Company Number: AU-BAYER-2021-211981

PATIENT

DRUGS (3)
  1. EYLEA [Suspect]
     Active Substance: AFLIBERCEPT
     Indication: Neovascular age-related macular degeneration
     Dosage: UNK, RIGHT EYE
     Route: 031
     Dates: start: 20161016
  2. EYLEA [Suspect]
     Active Substance: AFLIBERCEPT
     Dosage: EVERY 8 WEEKS
     Route: 031
     Dates: start: 20191016
  3. EYLEA [Suspect]
     Active Substance: AFLIBERCEPT
     Dosage: 1 DF, ONCE (LEFT EYE)
     Route: 031
     Dates: start: 20211203, end: 20211203

REACTIONS (6)
  - Visual impairment [Unknown]
  - Corneal abrasion [Unknown]
  - Eye disorder [Unknown]
  - Therapy interrupted [Unknown]
  - Tremor [Unknown]
  - Dizziness [Unknown]

NARRATIVE: CASE EVENT DATE: 20210601
